FAERS Safety Report 8783788 (Version 2)
Quarter: 2012Q4

REPORT INFORMATION
  Report Type: 
  Country: FR (occurrence: FR)
  Receive Date: 20120913
  Receipt Date: 20121115
  Transmission Date: 20130627
  Serious: Yes (Life-Threatening)
  Sender: FDA-Public Use
  Company Number: FR-B.I. PHARMACEUTICALS,INC./RIDGEFIELD-2012-FF-01225FF

PATIENT
  Age: 95 Year
  Sex: Female

DRUGS (1)
  1. PRADAXA [Suspect]
     Dosage: 220 mg
     Route: 048
     Dates: start: 201007, end: 20120801

REACTIONS (3)
  - Haemorrhage [Recovered/Resolved]
  - Anaemia [Recovered/Resolved]
  - International normalised ratio increased [Recovered/Resolved]
